FAERS Safety Report 4662444-2 (Version None)
Quarter: 2005Q2

REPORT INFORMATION
  Report Type: 
  Country: None (occurrence: None)
  Receive Date: 20050513
  Receipt Date: 20050513
  Transmission Date: 20051028
  Serious: Yes (Hospitalization)
  Sender: FDA-Public Use
  Company Number: None

PATIENT
  Age: 62 Year
  Sex: Male
  Weight: 91 kg

DRUGS (2)
  1. XELODA [Suspect]
     Indication: COLON CANCER METASTATIC
     Dosage: 1650 MG  BID ORAL
     Route: 048
     Dates: start: 20050414, end: 20050422
  2. IRINOTECAN  240MG/M2  PFIZER [Suspect]
     Indication: COLON CANCER METASTATIC
     Dosage: 523MG  ONCE Q 3 WEEKS  INTRAVENOUS
     Route: 042
     Dates: start: 20050414, end: 20050414

REACTIONS (6)
  - DEHYDRATION [None]
  - DIARRHOEA [None]
  - LEUKOPENIA [None]
  - NAUSEA [None]
  - NEUTROPENIA [None]
  - VOMITING [None]
